FAERS Safety Report 13948768 (Version 2)
Quarter: 2017Q4

REPORT INFORMATION
  Report Type: Spontaneous
  Country: CA (occurrence: CA)
  Receive Date: 20170908
  Receipt Date: 20171027
  Transmission Date: 20180320
  Serious: Yes (Other)
  Sender: FDA-Public Use
  Company Number: CA-APOTEX-2017AP017669

PATIENT
  Age: 40 Year
  Sex: Female

DRUGS (6)
  1. APO-CALCITONIN INJECTABLE [Suspect]
     Active Substance: CALCITONIN
     Indication: HYPERCALCAEMIA
     Dosage: 10 IU/KG, BID, FOR 48 H
     Route: 065
  2. APO FUROSEMIDE [Suspect]
     Active Substance: FUROSEMIDE
     Indication: HYPERCALCAEMIA
     Route: 065
  3. SALINE                             /00075401/ [Suspect]
     Active Substance: SODIUM CHLORIDE
     Indication: HYPERCALCAEMIA
     Dosage: UNK
     Route: 041
  4. APO-CINACALCET [Suspect]
     Active Substance: CINACALCET
     Dosage: 60 MG, BID
     Route: 065
  5. APO-CINACALCET [Suspect]
     Active Substance: CINACALCET
     Indication: HYPERCALCAEMIA
     Dosage: 30 MG, BID
     Route: 065
  6. CALCITONIN /00371903/ [Suspect]
     Active Substance: CALCITONIN SALMON
     Indication: HYPERCALCAEMIA
     Dosage: 10 IU/KG, BID
     Route: 065

REACTIONS (5)
  - Maternal exposure during pregnancy [Unknown]
  - Exposure during pregnancy [Unknown]
  - Nausea [Unknown]
  - Drug ineffective [Unknown]
  - Premature delivery [Unknown]
